FAERS Safety Report 5338309-X (Version None)
Quarter: 2007Q2

REPORT INFORMATION
  Report Type: 
  Country: None (occurrence: None)
  Receive Date: 20070405
  Receipt Date: 20061110
  Transmission Date: 20071010
  Serious: No
  Sender: FDA-Public Use
  Company Number: US200611002153

PATIENT
  Sex: Female

DRUGS (1)
  1. CYMBALTA [Suspect]
     Dosage: 30 MG

REACTIONS (4)
  - ABDOMINAL DISTENSION [None]
  - COELIAC DISEASE [None]
  - FLATULENCE [None]
  - GASTRIC DISORDER [None]
